FAERS Safety Report 7749350-1 (Version None)
Quarter: 2011Q3

REPORT INFORMATION
  Report Type: 
  Country: None (occurrence: None)
  Receive Date: 20110914
  Receipt Date: 20110908
  Transmission Date: 20111222
  Serious: Yes (Hospitalization, Other)
  Sender: FDA-Public Use
  Company Number: US-AMGEN-USASP2011018288

PATIENT
  Age: 49 Year
  Sex: Female

DRUGS (11)
  1. PREDNISONE [Concomitant]
     Dosage: 10 MG, QD
  2. CORTICOSTEROIDS [Concomitant]
  3. LEVOTHYROXINE SODIUM [Concomitant]
     Dosage: 225 MUG, QD
  4. SPIRONOLACTONE [Concomitant]
     Dosage: 25 MG, QD
  5. IMDUR [Concomitant]
     Dosage: 30 MG, QD
  6. HYDRALAZINE HCL [Concomitant]
     Dosage: 12.5 MG, TID
  7. NOVOLOG [Concomitant]
     Dosage: 4 UNK, UNK
  8. NPLATE [Suspect]
     Indication: IDIOPATHIC THROMBOCYTOPENIC PURPURA
     Dosage: 650 MUG, QWK
     Dates: start: 20101111
  9. CARVEDILOL [Concomitant]
     Dosage: 3.125 MG, BID
  10. LEVEMIR [Concomitant]
     Dosage: 20 UNK, UNK
  11. IVIGLOB-EX [Concomitant]

REACTIONS (2)
  - CARDIAC FAILURE CONGESTIVE [None]
  - CARDIOMYOPATHY [None]
